FAERS Safety Report 7096586-1 (Version None)
Quarter: 2010Q4

REPORT INFORMATION
  Report Type: 
  Country: None (occurrence: None)
  Receive Date: 20101111
  Receipt Date: 20101104
  Transmission Date: 20110411
  Serious: Yes (Other)
  Sender: FDA-Public Use
  Company Number: B0683888A

PATIENT
  Age: 69 Year
  Sex: Male

DRUGS (1)
  1. COMBODART [Suspect]
     Indication: BENIGN PROSTATIC HYPERPLASIA
     Dosage: 1TAB PER DAY
     Route: 048
     Dates: start: 20100903

REACTIONS (4)
  - ATRIAL FIBRILLATION [None]
  - DYSPEPSIA [None]
  - MALAISE [None]
  - MYOCARDIAL INFARCTION [None]
